FAERS Safety Report 16355363 (Version 2)
Quarter: 2019Q2

REPORT INFORMATION
  Report Type: Spontaneous
  Country: US (occurrence: US)
  Receive Date: 20190525
  Receipt Date: 20190528
  Transmission Date: 20190711
  Serious: Yes (Hospitalization, Other)
  Sender: FDA-Public Use
  Company Number: US-ABBVIE-19K-163-2793436-00

PATIENT
  Age: 72 Year

DRUGS (5)
  1. MIRAPEX [Concomitant]
     Active Substance: PRAMIPEXOLE DIHYDROCHLORIDE
     Indication: PRODUCT USED FOR UNKNOWN INDICATION
  2. PREDNISONE. [Suspect]
     Active Substance: PREDNISONE
     Indication: PRODUCT USED FOR UNKNOWN INDICATION
     Route: 065
  3. SEROQUEL [Concomitant]
     Active Substance: QUETIAPINE FUMARATE
     Indication: PRODUCT USED FOR UNKNOWN INDICATION
  4. LOVASTATIN. [Concomitant]
     Active Substance: LOVASTATIN
     Indication: PRODUCT USED FOR UNKNOWN INDICATION
  5. HUMIRA [Suspect]
     Active Substance: ADALIMUMAB
     Indication: OCULAR SARCOIDOSIS
     Route: 058
     Dates: start: 201904

REACTIONS (8)
  - Off label use [Not Recovered/Not Resolved]
  - Device issue [Unknown]
  - Hallucination [Not Recovered/Not Resolved]
  - Pneumonia [Recovering/Resolving]
  - Substance-induced psychotic disorder [Not Recovered/Not Resolved]
  - Staphylococcal infection [Recovering/Resolving]
  - Delusion [Not Recovered/Not Resolved]
  - Pulmonary oedema [Recovered/Resolved with Sequelae]

NARRATIVE: CASE EVENT DATE: 2019
